FAERS Safety Report 6379701-4 (Version None)
Quarter: 2009Q3

REPORT INFORMATION
  Report Type: 
  Country: None (occurrence: None)
  Receive Date: 20090928
  Receipt Date: 20090917
  Transmission Date: 20100115
  Serious: Yes (Other)
  Sender: FDA-Public Use
  Company Number: CA-ELI_LILLY_AND_COMPANY-CA200909004383

PATIENT
  Age: 68 Year
  Sex: Female

DRUGS (18)
  1. FORTEO [Suspect]
     Indication: OSTEOPOROSIS
     Dosage: 20 UG, DAILY (1/D)
     Route: 058
     Dates: start: 20080926, end: 20090701
  2. FORTEO [Suspect]
     Dosage: 20 UG, DAILY (1/D)
     Route: 058
     Dates: start: 20090801
  3. PREDNISONE TAB [Concomitant]
  4. NEXIUM [Concomitant]
  5. PMS DOCUSATE CALCIUM [Concomitant]
  6. SPIRIVA [Concomitant]
  7. NITRO-SPRAY [Concomitant]
  8. LYRICA [Concomitant]
  9. EFFEXOR [Concomitant]
  10. SYNTHROID [Concomitant]
  11. DILAUDID /CAN/ [Concomitant]
  12. SYMBICORT [Concomitant]
  13. VENTOLIN                                /SCH/ [Concomitant]
  14. AMRIX [Concomitant]
  15. ESTROGEL [Concomitant]
  16. FLUCONAZOLE [Concomitant]
  17. ATIVAN [Concomitant]
  18. ASAPHEN [Concomitant]

REACTIONS (6)
  - ARTHRITIS [None]
  - BLOOD PRESSURE ORTHOSTATIC DECREASED [None]
  - FIBROMYALGIA [None]
  - MEMORY IMPAIRMENT [None]
  - PAIN [None]
  - TRANSIENT ISCHAEMIC ATTACK [None]
